FAERS Safety Report 24185077 (Version 1)
Quarter: 2024Q3

REPORT INFORMATION
  Report Type: Spontaneous
  Country: CA (occurrence: None)
  Receive Date: 20240807
  Receipt Date: 20240807
  Transmission Date: 20241016
  Serious: Yes (Life-Threatening, Hospitalization, Other)
  Sender: Public
  Company Number: None

PATIENT
  Age: 24 Year
  Sex: Female
  Weight: 50.4 kg

DRUGS (3)
  1. CYCLOBENZAPRINE HYDROCHLORIDE [Suspect]
     Active Substance: CYCLOBENZAPRINE HYDROCHLORIDE
     Indication: Injury
     Dosage: OTHER QUANTITY : 1 TABLET(S);?FREQUENCY : 3 TIMES A DAY;?
     Route: 048
  2. CYCLOBENZAPRINE HYDROCHLORIDE [Suspect]
     Active Substance: CYCLOBENZAPRINE HYDROCHLORIDE
     Indication: Mental disorder
  3. NAPROXEN [Suspect]
     Active Substance: NAPROXEN

REACTIONS (11)
  - Impaired work ability [None]
  - Impaired driving ability [None]
  - Disorientation [None]
  - Substance abuse [None]
  - Suicide attempt [None]
  - Insomnia [None]
  - Hallucination [None]
  - Delusion [None]
  - Depressed mood [None]
  - Self-injurious ideation [None]
  - Drug dependence [None]

NARRATIVE: CASE EVENT DATE: 20180727
